FAERS Safety Report 8442714-2 (Version None)
Quarter: 2012Q2

REPORT INFORMATION
  Report Type: 
  Country: None (occurrence: None)
  Receive Date: 20120615
  Receipt Date: 20120606
  Transmission Date: 20120825
  Serious: Yes (Hospitalization)
  Sender: FDA-Public Use
  Company Number: US-ASTRAZENECA-2012SE26922

PATIENT
  Age: 17174 Day
  Sex: Female
  Weight: 75.8 kg

DRUGS (3)
  1. PERCOCET [Suspect]
     Indication: BACK PAIN
     Route: 065
  2. SEROQUEL [Suspect]
     Route: 048
  3. SEROQUEL [Suspect]
     Indication: BIPOLAR DISORDER
     Route: 048
     Dates: start: 20020101

REACTIONS (6)
  - CRYING [None]
  - SPINAL FRACTURE [None]
  - FEELING ABNORMAL [None]
  - BACK PAIN [None]
  - MEMORY IMPAIRMENT [None]
  - INTENTIONAL DRUG MISUSE [None]
